FAERS Safety Report 6940678-1 (Version None)
Quarter: 2010Q3

REPORT INFORMATION
  Report Type: 
  Country: None (occurrence: None)
  Receive Date: 20100820
  Receipt Date: 20100806
  Transmission Date: 20110219
  Serious: Yes (Hospitalization, Disabling)
  Sender: FDA-Public Use
  Company Number: 2007AL003875

PATIENT
  Age: 70 Year
  Sex: Female
  Weight: 90.7194 kg

DRUGS (17)
  1. METOCLOPRAMIDE [Suspect]
     Indication: DIABETIC GASTROPARESIS
     Dosage: 10 MG TID PO
     Route: 048
     Dates: start: 19990512, end: 20050419
  2. CELEXA [Concomitant]
  3. METOPROLOL TARTRATE [Concomitant]
  4. LISINOPRIL [Concomitant]
  5. DETROL [Concomitant]
  6. LANTUS [Concomitant]
  7. GLIPIZIDE [Concomitant]
  8. HYDROCHLOROTHIAZIDE [Concomitant]
  9. CARDIZEM [Concomitant]
  10. EFFEXOR [Concomitant]
  11. VERELAN [Concomitant]
  12. ZESTRIL [Concomitant]
  13. NAPROSYN [Concomitant]
  14. DOCUSATE SODIUM [Concomitant]
  15. METFORMIN HCL [Concomitant]
  16. ZANTAC [Concomitant]
  17. ASPIRIN [Concomitant]

REACTIONS (40)
  - ABDOMINAL DISTENSION [None]
  - ABDOMINAL PAIN UPPER [None]
  - ACTIVITIES OF DAILY LIVING IMPAIRED [None]
  - AGITATION [None]
  - ANXIETY [None]
  - BLOOD CREATININE INCREASED [None]
  - CONSTIPATION [None]
  - DEFORMITY [None]
  - DEPRESSION [None]
  - DIARRHOEA [None]
  - DRY MOUTH [None]
  - DYSARTHRIA [None]
  - DYSPHAGIA [None]
  - DYSPNOEA [None]
  - EAR PAIN [None]
  - ERUCTATION [None]
  - FALL [None]
  - FATIGUE [None]
  - FLAT AFFECT [None]
  - FLATULENCE [None]
  - HYPERGLYCAEMIA [None]
  - HYPERTENSION [None]
  - INCORRECT DRUG ADMINISTRATION DURATION [None]
  - MENTAL DISORDER [None]
  - NASOPHARYNGITIS [None]
  - NAUSEA [None]
  - NOCTURIA [None]
  - OROMANDIBULAR DYSTONIA [None]
  - PAIN [None]
  - PAIN IN JAW [None]
  - PARONYCHIA [None]
  - RECTAL HAEMORRHAGE [None]
  - RESTLESS LEGS SYNDROME [None]
  - RHONCHI [None]
  - SLEEP APNOEA SYNDROME [None]
  - SOMNOLENCE [None]
  - STOMATITIS [None]
  - TARDIVE DYSKINESIA [None]
  - URINARY INCONTINENCE [None]
  - VOMITING [None]
